FAERS Safety Report 11604049 (Version 1)
Quarter: 2015Q4

REPORT INFORMATION
  Report Type: Spontaneous
  Country: US (occurrence: None)
  Receive Date: 20151006
  Receipt Date: 20151006
  Transmission Date: 20160304
  Serious: Yes (Hospitalization)
  Sender: FDA-Public Use
  Company Number: None

PATIENT
  Age: 60 Year
  Sex: Male
  Weight: 81.8 kg

DRUGS (1)
  1. SULFAMETHOXAZOLE/TRIMETHOPRIM [Suspect]
     Active Substance: SULFAMETHOXAZOLE\TRIMETHOPRIM
     Indication: SURGERY
     Route: 048
     Dates: start: 20150706, end: 20150712

REACTIONS (4)
  - Rash erythematous [None]
  - Urticaria [None]
  - Dermatitis exfoliative [None]
  - Oedema peripheral [None]

NARRATIVE: CASE EVENT DATE: 20150715
